FAERS Safety Report 23425487 (Version 3)
Quarter: 2025Q1

REPORT INFORMATION
  Report Type: Spontaneous
  Country: US (occurrence: US)
  Receive Date: 20240122
  Receipt Date: 20250311
  Transmission Date: 20250408
  Serious: No
  Sender: UROGEN PHARMA
  Company Number: US-UROGEN PHARMA LTD.-2023-UGN-000091

PATIENT

DRUGS (17)
  1. JELMYTO [Suspect]
     Active Substance: MITOMYCIN
     Indication: Transitional cell cancer of the renal pelvis and ureter
     Dosage: UNK, (INSTILLATION) ONCE A WEEK
     Dates: start: 20230926, end: 20230926
  2. JELMYTO [Suspect]
     Active Substance: MITOMYCIN
     Dosage: UNK, (INSTILLATION) ONCE A WEEK
     Dates: start: 20231003, end: 20231003
  3. JELMYTO [Suspect]
     Active Substance: MITOMYCIN
     Dosage: UNK, (INSTILLATION) ONCE A WEEK
     Dates: start: 20231010, end: 20231010
  4. JELMYTO [Suspect]
     Active Substance: MITOMYCIN
     Dosage: UNK, (INSTILLATION) ONCE A WEEK
     Dates: start: 20231017, end: 20231017
  5. JELMYTO [Suspect]
     Active Substance: MITOMYCIN
     Dosage: UNK, (INSTILLATION) ONCE A WEEK
     Dates: start: 20231024, end: 20231024
  6. JELMYTO [Suspect]
     Active Substance: MITOMYCIN
     Dosage: UNK, (INSTILLATION) ONCE A WEEK
     Dates: start: 20231031, end: 20231031
  7. JELMYTO [Suspect]
     Active Substance: MITOMYCIN
     Dosage: UNK, (INSTILLATION), ONCE A MONTH, MAINTENANCE)
     Route: 065
     Dates: start: 202401, end: 202401
  8. JELMYTO [Suspect]
     Active Substance: MITOMYCIN
     Dosage: UNK, (INSTILLATION), ONCE A MONTH, MAINTENANCE)
     Route: 065
     Dates: start: 2024, end: 2024
  9. JELMYTO [Suspect]
     Active Substance: MITOMYCIN
     Dosage: UNK, (INSTILLATION), ONCE A MONTH, MAINTENANCE)
     Route: 065
     Dates: start: 2024, end: 2024
  10. JELMYTO [Suspect]
     Active Substance: MITOMYCIN
     Dosage: UNK, (INSTILLATION), ONCE A MONTH, MAINTENANCE)
     Route: 065
     Dates: start: 2024, end: 2024
  11. JELMYTO [Suspect]
     Active Substance: MITOMYCIN
     Dosage: UNK, (INSTILLATION), ONCE A MONTH, MAINTENANCE)
     Route: 065
     Dates: start: 2024, end: 2024
  12. JELMYTO [Suspect]
     Active Substance: MITOMYCIN
     Dosage: UNK, (INSTILLATION), ONCE A MONTH, MAINTENANCE)
     Route: 065
     Dates: start: 2024, end: 2024
  13. JELMYTO [Suspect]
     Active Substance: MITOMYCIN
     Dosage: UNK, (INSTILLATION), ONCE A MONTH, MAINTENANCE)
     Route: 065
     Dates: start: 2024, end: 2024
  14. JELMYTO [Suspect]
     Active Substance: MITOMYCIN
     Dosage: UNK, (INSTILLATION), ONCE A MONTH, MAINTENANCE
     Route: 065
     Dates: start: 2024, end: 2024
  15. JELMYTO [Suspect]
     Active Substance: MITOMYCIN
     Dosage: UNK, (INSTILLATION), ONCE A MONTH, MAINTENANCE
     Route: 065
     Dates: start: 2024, end: 2024
  16. JELMYTO [Suspect]
     Active Substance: MITOMYCIN
     Dosage: UNK, (INSTILLATION), ONCE A MONTH, MAINTENANCE
     Route: 065
     Dates: start: 2024, end: 2024
  17. JELMYTO [Suspect]
     Active Substance: MITOMYCIN
     Dosage: UNK, (INSTILLATION), ONCE A MONTH, (MAINTENANCE)
     Route: 065
     Dates: start: 20250102, end: 20250102

REACTIONS (3)
  - Headache [Unknown]
  - Hypertension [Not Recovered/Not Resolved]
  - Abdominal pain upper [Not Recovered/Not Resolved]

NARRATIVE: CASE EVENT DATE: 20231101
